FAERS Safety Report 6607923-3 (Version None)
Quarter: 2010Q1

REPORT INFORMATION
  Report Type: 
  Country: None (occurrence: None)
  Receive Date: 20100301
  Receipt Date: 20100222
  Transmission Date: 20100710
  Serious: Yes (Death)
  Sender: FDA-Public Use
  Company Number: CHPA2010US03705

PATIENT
  Age: 66 Year
  Sex: Female

DRUGS (9)
  1. ACETYLSALICYLIC ACID SRT [Suspect]
     Route: 048
  2. OXYCODONE [Suspect]
     Route: 048
  3. BENZODIAZEPINES [Suspect]
     Route: 048
  4. ETHANOL [Suspect]
     Route: 048
  5. ACETAMINOPHEN [Suspect]
     Route: 048
  6. CHLORDIAZEPOXIDE W/CLIDINIUM BROMIDE [Suspect]
     Route: 048
  7. BENZONATATE [Suspect]
     Route: 048
  8. CHLOROTHIAZIDE [Suspect]
  9. DRUG THERAPY NOS [Suspect]
     Route: 048

REACTIONS (1)
  - DEATH [None]
